FAERS Safety Report 10221755 (Version 2)
Quarter: 2014Q2

REPORT INFORMATION
  Report Type: Spontaneous
  Country: MX (occurrence: MX)
  Receive Date: 20140606
  Receipt Date: 20140606
  Transmission Date: 20141212
  Serious: No
  Sender: FDA-Public Use
  Company Number: MX-BIOMARINAP-MX-2013-100886

PATIENT
  Age: 3 Year
  Sex: Female
  Weight: 12.5 kg

DRUGS (1)
  1. NAGLAZYME [Suspect]
     Indication: PRODUCT USED FOR UNKNOWN INDICATION
     Dosage: UNK, QW
     Route: 042
     Dates: start: 20130603

REACTIONS (1)
  - Cough [Unknown]
